FAERS Safety Report 10143970 (Version 1)
Quarter: 2014Q2

REPORT INFORMATION
  Report Type: Spontaneous
  Country: US (occurrence: US)
  Receive Date: 20140430
  Receipt Date: 20140430
  Transmission Date: 20141212
  Serious: No
  Sender: FDA-Public Use
  Company Number: US-BAYER-2014-063687

PATIENT
  Sex: Female

DRUGS (1)
  1. MIRENA [Suspect]
     Indication: CONTRACEPTION
     Dosage: 20 ?G/D, CONT
     Route: 015
     Dates: start: 201403

REACTIONS (4)
  - Abdominal pain [Not Recovered/Not Resolved]
  - Affect lability [Not Recovered/Not Resolved]
  - Nightmare [Not Recovered/Not Resolved]
  - Stress [Not Recovered/Not Resolved]
